FAERS Safety Report 8041406-1 (Version None)
Quarter: 2012Q1

REPORT INFORMATION
  Report Type: 
  Country: None (occurrence: None)
  Receive Date: 20120112
  Receipt Date: 20120105
  Transmission Date: 20120608
  Serious: Yes (Hospitalization)
  Sender: FDA-Public Use
  Company Number: US-BAYER-2011-032978

PATIENT
  Age: 43 Year
  Sex: Female
  Weight: 88.435 kg

DRUGS (1)
  1. YASMIN [Suspect]
     Indication: ACNE
     Dosage: UNK
     Dates: start: 20060301, end: 20060601

REACTIONS (3)
  - INJURY [None]
  - DEEP VEIN THROMBOSIS [None]
  - PAIN [None]
